FAERS Safety Report 8577241-5 (Version None)
Quarter: 2012Q3

REPORT INFORMATION
  Report Type: 
  Country: None (occurrence: None)
  Receive Date: 20120807
  Receipt Date: 20120725
  Transmission Date: 20120928
  Serious: Yes (Hospitalization)
  Sender: FDA-Public Use
  Company Number: US-UCBSA-007885

PATIENT
  Age: 76 Year
  Sex: Male
  Weight: 80 kg

DRUGS (14)
  1. AMANTADINE HCL [Concomitant]
     Indication: PARKINSON'S DISEASE
  2. COMTAN [Concomitant]
     Indication: PARKINSON'S DISEASE
     Dates: start: 20070717
  3. REMERON [Concomitant]
     Indication: INSOMNIA
     Dates: start: 20080122
  4. ROTIGOTINE [Suspect]
     Indication: PARKINSON'S DISEASE
     Route: 062
     Dates: start: 20090203
  5. VITAMIN D [Concomitant]
     Dosage: 1000 IU 1 TAB QD OCCASIONALLY
  6. SINEMET CR [Concomitant]
     Indication: PARKINSON'S DISEASE
     Dosage: 25/100 TAB FOUR TIMES DAILY (9,12,4,10)
     Dates: start: 20070717
  7. DIOVAN HCT [Concomitant]
     Indication: HYPERTENSION
     Dosage: 160/12.5 1 TAB QD
     Dates: start: 20070717
  8. CLONAZEPAM [Concomitant]
     Indication: INSOMNIA
     Dates: start: 20090114
  9. NEUPRO [Concomitant]
     Indication: PARKINSON'S DISEASE
     Dates: start: 20070809
  10. AMANTADINE HCL [Concomitant]
     Dates: start: 20070717
  11. ROTIGOTINE [Suspect]
     Route: 062
  12. AMBIEN [Concomitant]
     Indication: INSOMNIA
     Dates: start: 20090106
  13. REMERON [Concomitant]
     Indication: DEPRESSION
     Dates: start: 20080122
  14. XANAX [Concomitant]

REACTIONS (1)
  - HIP FRACTURE [None]
